FAERS Safety Report 9986037 (Version 1)
Quarter: 2014Q1

REPORT INFORMATION
  Report Type: Report from Study
  Country: US (occurrence: US)
  Receive Date: 20140307
  Receipt Date: 20140307
  Transmission Date: 20141002
  Serious: No
  Sender: FDA-Public Use
  Company Number: US-ABBVIE-13P-163-1088645-00

PATIENT
  Age: 60 Year
  Sex: Female
  Weight: 72.64 kg

DRUGS (7)
  1. HUMIRA [Suspect]
     Indication: RHEUMATOID ARTHRITIS
     Dates: start: 201102, end: 201301
  2. DICLOFENAC [Concomitant]
     Indication: PAIN
  3. OXYCONTIN [Concomitant]
     Indication: PAIN
  4. LIPITOR [Concomitant]
     Indication: BLOOD CHOLESTEROL INCREASED
  5. AMITRIPTYLINE [Concomitant]
     Indication: DEPRESSION
  6. HORMONE PATCH [Concomitant]
     Indication: HORMONE REPLACEMENT THERAPY
  7. XANAX [Concomitant]
     Indication: ANXIETY

REACTIONS (1)
  - Arthralgia [Not Recovered/Not Resolved]
